FAERS Safety Report 5644071-3 (Version None)
Quarter: 2008Q1

REPORT INFORMATION
  Report Type: 
  Country: None (occurrence: None)
  Receive Date: 20080226
  Receipt Date: 20080212
  Transmission Date: 20080703
  Serious: Yes (Hospitalization)
  Sender: FDA-Public Use
  Company Number: B0508945A

PATIENT
  Age: 87 Year
  Sex: Male

DRUGS (7)
  1. PAXIL [Suspect]
     Indication: DRUG USE FOR UNKNOWN INDICATION
     Dosage: ORAL
     Route: 048
  2. FLUINDIONE (FORMULATION UNKNOWN) ( FLUINDIONE) [Suspect]
     Dosage: ORAL
     Route: 048
  3. AMIODARONE HYDROCHLORIDE [Suspect]
     Dosage: 1 UNIT/ PER DAY/ ORAL
     Route: 048
  4. LAMOTRIGINE [Concomitant]
  5. LANSOPRAZOLE [Concomitant]
  6. SAW PALMETTO [Concomitant]
  7. MEPRONIZINE [Concomitant]

REACTIONS (13)
  - ABASIA [None]
  - CARDIAC MURMUR [None]
  - CEREBRAL ATROPHY [None]
  - CONSTIPATION [None]
  - HAEMATOMA [None]
  - HAEMOGLOBIN DECREASED [None]
  - HEART SOUNDS ABNORMAL [None]
  - ILL-DEFINED DISORDER [None]
  - INTERNATIONAL NORMALISED RATIO INCREASED [None]
  - MALAISE [None]
  - ORAL INTAKE REDUCED [None]
  - OVERDOSE [None]
  - PULSE ABSENT [None]
